FAERS Safety Report 21052872 (Version 1)
Quarter: 2022Q3

REPORT INFORMATION
  Report Type: Spontaneous
  Country: US (occurrence: US)
  Receive Date: 20220707
  Receipt Date: 20220707
  Transmission Date: 20221027
  Serious: Yes (Hospitalization, Other)
  Sender: FDA-Public Use
  Company Number: US-UNITED THERAPEUTICS-UNT-2022-012508

PATIENT
  Age: 61 Year
  Sex: Female

DRUGS (6)
  1. REMODULIN [Suspect]
     Active Substance: TREPROSTINIL
     Indication: Pulmonary arterial hypertension
     Dosage: UNK, CONTINUING
     Route: 058
     Dates: start: 20220225
  2. REMODULIN [Suspect]
     Active Substance: TREPROSTINIL
     Dosage: 0.0204 ?G/KG, CONTINUING (PUMP RATE OF 0.07 ML/HR)
     Route: 058
     Dates: start: 2022
  3. REMODULIN [Suspect]
     Active Substance: TREPROSTINIL
     Dosage: 0.0224 ?G/KG, CONTINUING (PUMP RATE OF 0.076 ML/HR)
     Route: 058
     Dates: start: 2022, end: 202206
  4. REMODULIN [Suspect]
     Active Substance: TREPROSTINIL
     Indication: Pulmonary arterial hypertension
     Dosage: UNK, CONTINUING
     Route: 058
     Dates: start: 202206
  5. REMODULIN [Suspect]
     Active Substance: TREPROSTINIL
     Dosage: 0.0316 ?G/KG, CONTINUING (PUMP RATE OF 0.022 ML/HR)
     Route: 058
     Dates: start: 202206
  6. REMODULIN [Suspect]
     Active Substance: TREPROSTINIL
     Dosage: 0.0639 ?G/KG, CONTINUING (PUMP RATE OF 0.044 ML/HR)
     Route: 058
     Dates: start: 202206

REACTIONS (1)
  - Pulmonary arterial hypertension [Unknown]

NARRATIVE: CASE EVENT DATE: 20220624
